FAERS Safety Report 5679313-1 (Version None)
Quarter: 2008Q1

REPORT INFORMATION
  Report Type: 
  Country: None (occurrence: None)
  Receive Date: 20080321
  Receipt Date: 20080306
  Transmission Date: 20080703
  Serious: Yes (Other)
  Sender: FDA-Public Use
  Company Number: S08-UKI-00935-01

PATIENT
  Age: 45 Year
  Sex: Female

DRUGS (2)
  1. MEMANTINE HCL [Suspect]
     Dosage: 10 MG QD PO
     Route: 048
  2. MEMANTINE HCL [Suspect]
     Dosage: 5 MG QD PO
     Route: 048

REACTIONS (2)
  - GAIT DISTURBANCE [None]
  - GRAND MAL CONVULSION [None]
